FAERS Safety Report 6194259-0 (Version None)
Quarter: 2009Q2

REPORT INFORMATION
  Report Type: 
  Country: None (occurrence: None)
  Receive Date: 20090514
  Receipt Date: 20090511
  Transmission Date: 20091009
  Serious: Yes (Death)
  Sender: FDA-Public Use
  Company Number: 2009SP010059

PATIENT
  Sex: Male

DRUGS (1)
  1. INTRON A [Suspect]
     Indication: METASTASIS
     Dosage: 5 MIU; 4 MIU

REACTIONS (1)
  - DEATH [None]
